FAERS Safety Report 8824856 (Version 1)
Quarter: 2012Q4

REPORT INFORMATION
  Report Type: 
  Country: AU (occurrence: AU)
  Receive Date: 20121004
  Receipt Date: 20121004
  Transmission Date: 20130627
  Serious: Yes (Hospitalization)
  Sender: FDA-Public Use
  Company Number: AU-ASTRAZENECA-2012SE74766

PATIENT
  Age: 17 Year
  Sex: Male

DRUGS (1)
  1. SEROQUEL [Suspect]
     Route: 048
     Dates: start: 20120816

REACTIONS (4)
  - Loss of consciousness [Recovered/Resolved]
  - Musculoskeletal pain [Recovered/Resolved]
  - Joint dislocation [Recovered/Resolved]
  - Convulsion [Recovered/Resolved]
